FAERS Safety Report 20491181 (Version 1)
Quarter: 2022Q1

REPORT INFORMATION
  Report Type: Spontaneous
  Country: US (occurrence: None)
  Receive Date: 20220218
  Receipt Date: 20220218
  Transmission Date: 20220423
  Serious: Yes (Disabling)
  Sender: FDA-Public Use
  Company Number: None

PATIENT
  Age: 91 Year
  Sex: Male
  Weight: 75.6 kg

DRUGS (1)
  1. TRAZODONE [Suspect]
     Active Substance: TRAZODONE HYDROCHLORIDE
     Indication: Insomnia
     Dosage: OTHER QUANTITY : 1 TABLET(S);?FREQUENCY : AT BEDTIME;?
     Route: 048
     Dates: start: 20210201

REACTIONS (2)
  - Hyperhidrosis [None]
  - Insomnia [None]

NARRATIVE: CASE EVENT DATE: 20210201
